FAERS Safety Report 17395751 (Version 1)
Quarter: 2020Q1

REPORT INFORMATION
  Report Type: Spontaneous
  Country: US (occurrence: US)
  Receive Date: 20200206
  Receipt Date: 20200206
  Transmission Date: 20200409
  Serious: Yes (Life-Threatening)
  Sender: FDA-Public Use
  Company Number: None

PATIENT
  Age: 33 Year
  Sex: Male

DRUGS (2)
  1. ZZZQUILL [Concomitant]
     Active Substance: DIPHENHYDRAMINE HYDROCHLORIDE
     Dates: start: 20200203, end: 20200205
  2. OSELTAMIVIR [Suspect]
     Active Substance: OSELTAMIVIR
     Dates: start: 20200203, end: 20200205

REACTIONS (5)
  - Skin exfoliation [None]
  - Tongue injury [None]
  - HIV infection [None]
  - Stridor [None]
  - Contusion [None]

NARRATIVE: CASE EVENT DATE: 20200205
